FAERS Safety Report 5114231-9 (Version None)
Quarter: 2006Q3

REPORT INFORMATION
  Report Type: 
  Country: None (occurrence: None)
  Receive Date: 20060925
  Receipt Date: 20060919
  Transmission Date: 20061208
  Serious: Yes (Hospitalization)
  Sender: FDA-Public Use
  Company Number: US-SANOFI-SYNTHELABO-F03200600204

PATIENT
  Age: 929 Month
  Sex: Female

DRUGS (5)
  1. OXALIPLATIN [Suspect]
     Indication: COLON CANCER
     Dosage: 85 MG/M2 (165 MG)
     Route: 042
     Dates: start: 20060731, end: 20060731
  2. LEUCOVORIN CALCIUM [Suspect]
     Indication: COLON CANCER
     Dosage: 400 MG/M2 (1710 MG)
     Route: 042
     Dates: start: 20060724, end: 20060724
  3. ERBITUX [Suspect]
     Indication: COLON CANCER
     Dosage: 250 MG/M2 (1124 MG) WEEKLY
     Route: 042
     Dates: start: 20060724, end: 20060724
  4. AVASTIN [Suspect]
     Indication: COLON CANCER
     Dosage: 5 MG/KG (552 MG) EVERY 2 WEEKS
     Route: 042
     Dates: start: 20060717, end: 20060717
  5. FLUOROURACIL [Suspect]
     Indication: COLON CANCER
     Dosage: 400 MG/M2 + 2400 MG/M2 (9093 MG)
     Route: 042
     Dates: start: 20060731, end: 20060731

REACTIONS (10)
  - CATHETER RELATED INFECTION [None]
  - ENTERITIS [None]
  - HAEMOPTYSIS [None]
  - MUCOSAL INFLAMMATION [None]
  - NEUROTOXICITY [None]
  - PLATELET COUNT DECREASED [None]
  - PNEUMOTHORAX [None]
  - PSEUDOMONAL SEPSIS [None]
  - SEPTIC EMBOLUS [None]
  - TRANSIENT ISCHAEMIC ATTACK [None]
